FAERS Safety Report 10310685 (Version 3)
Quarter: 2014Q3

REPORT INFORMATION
  Report Type: Report from Study
  Country: FR (occurrence: FR)
  Receive Date: 20140717
  Receipt Date: 20140904
  Transmission Date: 20150326
  Serious: Yes (Other)
  Sender: FDA-Public Use
  Company Number: FR-CELGENEUS-056-C5013-14070940

PATIENT
  Age: 75 Year
  Sex: Male

DRUGS (14)
  1. PREDNISONE. [Suspect]
     Active Substance: PREDNISONE
     Indication: PLASMA CELL MYELOMA
     Route: 065
     Dates: start: 20110729, end: 20120604
  2. RIVOTRIL [Concomitant]
     Active Substance: CLONAZEPAM
     Indication: RESTLESS LEGS SYNDROME
     Dosage: 5 DROPS
     Route: 048
     Dates: start: 20100225
  3. DEXAMETHASONE. [Suspect]
     Active Substance: DEXAMETHASONE
     Indication: PLASMA CELL MYELOMA
     Route: 065
     Dates: start: 20100617, end: 20110513
  4. CC-5013 [Suspect]
     Active Substance: LENALIDOMIDE
     Indication: PLASMA CELL MYELOMA
     Dosage: 25 MILLIGRAM
     Route: 048
     Dates: start: 20100617, end: 20100707
  5. DEXAMETHASONE. [Suspect]
     Active Substance: DEXAMETHASONE
     Route: 065
     Dates: start: 20140520
  6. LANZOR [Concomitant]
     Active Substance: LANSOPRAZOLE
     Indication: GASTRIC ULCER
     Dosage: 30 MILLIGRAM
     Route: 048
     Dates: start: 2005
  7. CLASTOBAN [Concomitant]
     Active Substance: CLODRONIC ACID
     Indication: PROPHYLAXIS
     Dosage: 1600 MILLIGRAM
     Route: 048
     Dates: start: 20100616
  8. BORTEZOMIB [Suspect]
     Active Substance: BORTEZOMIB
     Indication: PLASMA CELL MYELOMA
     Route: 065
     Dates: start: 20110729, end: 20120622
  9. BORTEZOMIB [Suspect]
     Active Substance: BORTEZOMIB
     Route: 065
     Dates: start: 20140520
  10. ADARTREL [Concomitant]
     Active Substance: ROPINIROLE
     Indication: RESTLESS LEGS SYNDROME
     Dosage: 2 MILLIGRAM
     Route: 048
     Dates: start: 2007
  11. KARDEGIC [Concomitant]
     Active Substance: ASPIRIN LYSINE
     Indication: THROMBOSIS PROPHYLAXIS
     Dosage: 160 MILLIGRAM
     Route: 048
     Dates: start: 20100616
  12. ENDOXAN [Concomitant]
     Active Substance: CYCLOPHOSPHAMIDE
     Indication: PLASMA CELL MYELOMA
     Route: 065
     Dates: start: 20140520
  13. CC-5013 [Suspect]
     Active Substance: LENALIDOMIDE
     Route: 048
     Dates: start: 20110422, end: 20110512
  14. MELPHALAN [Suspect]
     Active Substance: MELPHALAN
     Indication: PLASMA CELL MYELOMA
     Route: 065
     Dates: start: 20110729, end: 20120604

REACTIONS (1)
  - Hepatocellular carcinoma [Not Recovered/Not Resolved]

NARRATIVE: CASE EVENT DATE: 20140506
